FAERS Safety Report 9338646 (Version 1)
Quarter: 2013Q2

REPORT INFORMATION
  Report Type: Spontaneous
  Country: US (occurrence: US)
  Receive Date: 20130610
  Receipt Date: 20130610
  Transmission Date: 20140414
  Serious: Yes (Other)
  Sender: FDA-Public Use
  Company Number: US-SANOFI-AVENTIS-2013SA056197

PATIENT
  Sex: Female

DRUGS (14)
  1. LANTUS [Suspect]
  2. LASIX [Suspect]
  3. PLAQUENIL [Suspect]
  4. AMITRIPTYLINE [Suspect]
  5. NOVOLOG [Suspect]
  6. PREDNISONE [Suspect]
  7. METOPROLOL [Suspect]
  8. LISINOPRIL [Suspect]
  9. ZESTRIL [Suspect]
  10. METHOTREXATE [Suspect]
  11. FLEXERIL [Suspect]
  12. PERCOCET [Suspect]
  13. VITAMIN D [Suspect]
  14. POTASSIUM [Suspect]

REACTIONS (1)
  - Weight increased [Unknown]
